FAERS Safety Report 6927537-5 (Version None)
Quarter: 2010Q3

REPORT INFORMATION
  Report Type: 
  Country: None (occurrence: None)
  Receive Date: 20100812
  Receipt Date: 20100726
  Transmission Date: 20110219
  Serious: No
  Sender: FDA-Public Use
  Company Number: 2010P1000194

PATIENT
  Sex: Male
  Weight: 83.9154 kg

DRUGS (25)
  1. WARFARIN SODIUM [Suspect]
     Indication: ATRIAL FIBRILLATION
     Dosage: 2.5 MG; 6D/WK; PO, 5 MG; 1D/WK; PO, 2.5 MG; QD; PO
     Route: 048
     Dates: start: 20100701, end: 20100705
  2. WARFARIN SODIUM [Suspect]
     Indication: CARDIAC ABLATION
     Dosage: 2.5 MG; 6D/WK; PO, 5 MG; 1D/WK; PO, 2.5 MG; QD; PO
     Route: 048
     Dates: start: 20100701, end: 20100705
  3. WARFARIN SODIUM [Suspect]
     Indication: ATRIAL FIBRILLATION
     Dosage: 2.5 MG; 6D/WK; PO, 5 MG; 1D/WK; PO, 2.5 MG; QD; PO
     Route: 048
     Dates: start: 20100701, end: 20100705
  4. WARFARIN SODIUM [Suspect]
     Indication: CARDIAC ABLATION
     Dosage: 2.5 MG; 6D/WK; PO, 5 MG; 1D/WK; PO, 2.5 MG; QD; PO
     Route: 048
     Dates: start: 20100701, end: 20100705
  5. WARFARIN SODIUM [Suspect]
     Indication: ATRIAL FIBRILLATION
     Dosage: 2.5 MG; 6D/WK; PO, 5 MG; 1D/WK; PO, 2.5 MG; QD; PO
     Route: 048
     Dates: start: 20100709
  6. WARFARIN SODIUM [Suspect]
     Indication: CARDIAC ABLATION
     Dosage: 2.5 MG; 6D/WK; PO, 5 MG; 1D/WK; PO, 2.5 MG; QD; PO
     Route: 048
     Dates: start: 20100709
  7. OMEPRAZOLE [Suspect]
     Dosage: 20 MG; QD; PO
     Route: 048
     Dates: start: 20100701
  8. PRIMIDONE [Suspect]
     Dosage: 25 MG; QAM; PO, 50 MG; QPM; PO
     Route: 048
     Dates: start: 20100601
  9. PRIMIDONE [Suspect]
     Dosage: 25 MG; QAM; PO, 50 MG; QPM; PO
     Route: 048
     Dates: start: 20100601
  10. PROCRIT [Concomitant]
  11. LASIX [Concomitant]
  12. POTASSIUM [Concomitant]
  13. HYTRIN [Concomitant]
  14. ARAVA [Concomitant]
  15. SINEMET [Concomitant]
  16. PROAIR HFA [Concomitant]
  17. PLAVIX [Concomitant]
  18. OMEPRAZINE [Concomitant]
  19. CALCIUM [Concomitant]
  20. ALBUTEROL [Concomitant]
  21. LORTAB [Concomitant]
  22. CARDIZEM [Concomitant]
  23. PROPRANOLOL [Concomitant]
  24. ZOLOFT [Concomitant]
  25. LISINOPRIL [Concomitant]

REACTIONS (3)
  - EPISTAXIS [None]
  - INTERNATIONAL NORMALISED RATIO INCREASED [None]
  - PROTHROMBIN TIME PROLONGED [None]
